FAERS Safety Report 8245337-3 (Version None)
Quarter: 2012Q1

REPORT INFORMATION
  Report Type: 
  Country: None (occurrence: None)
  Receive Date: 20120329
  Receipt Date: 20120321
  Transmission Date: 20120608
  Serious: Yes (Other)
  Sender: FDA-Public Use
  Company Number: US-ABBOTT-12P-163-0917495-00

PATIENT
  Sex: Female
  Weight: 72.64 kg

DRUGS (14)
  1. SIMCOR [Suspect]
     Dosage: 2-1000/20MG TABS DAILY
     Dates: start: 20120101
  2. TRAZODONE HCL [Concomitant]
     Indication: PRODUCT USED FOR UNKNOWN INDICATION
  3. SPIRONOLACTONE [Concomitant]
     Indication: PRODUCT USED FOR UNKNOWN INDICATION
  4. METFORMIN HCL [Concomitant]
     Indication: PRODUCT USED FOR UNKNOWN INDICATION
  5. ATENOLOL [Concomitant]
     Indication: PRODUCT USED FOR UNKNOWN INDICATION
  6. SIMCOR [Suspect]
     Indication: BLOOD CHOLESTEROL ABNORMAL
     Dosage: 1-1000/20MG TAB DAILY
     Dates: start: 20090101, end: 20120101
  7. VITAMIN B COMPLEX CAP [Concomitant]
     Indication: PRODUCT USED FOR UNKNOWN INDICATION
  8. SIMCOR [Suspect]
     Dosage: 1-1000/20MG TAB DAILY
  9. STELARA [Suspect]
     Indication: PSORIASIS
     Dates: start: 20100101
  10. LOVAZA [Concomitant]
     Indication: PRODUCT USED FOR UNKNOWN INDICATION
  11. ASPIRIN [Concomitant]
     Indication: PRODUCT USED FOR UNKNOWN INDICATION
  12. SERERA [Concomitant]
     Indication: PRODUCT USED FOR UNKNOWN INDICATION
  13. ALDACTONE [Concomitant]
     Indication: PRODUCT USED FOR UNKNOWN INDICATION
  14. FENOFIBRATE [Concomitant]
     Indication: PRODUCT USED FOR UNKNOWN INDICATION

REACTIONS (8)
  - MALIGNANT MELANOMA [None]
  - BLOOD CHOLESTEROL ABNORMAL [None]
  - PSORIASIS [None]
  - DIABETES MELLITUS [None]
  - FLUSHING [None]
  - PRURITUS [None]
  - MYALGIA [None]
  - ERYTHEMA [None]
